FAERS Safety Report 21752321 (Version 1)
Quarter: 2022Q4

REPORT INFORMATION
  Report Type: Report from Study
  Country: BR (occurrence: BR)
  Receive Date: 20221220
  Receipt Date: 20221220
  Transmission Date: 20230113
  Serious: Yes (Hospitalization)
  Sender: FDA-Public Use
  Company Number: BR-JNJFOC-20221227208

PATIENT

DRUGS (2)
  1. HALDOL [Suspect]
     Active Substance: HALOPERIDOL
     Indication: Mental disorder
     Dosage: TREATMENT FOR AT LEAST 5 MONTHS
     Route: 065
  2. HALOPERIDOL DECANOATE [Suspect]
     Active Substance: HALOPERIDOL DECANOATE
     Indication: Mental disorder
     Dosage: TREATMENT FOR AT LEAST 5 MONTHS
     Route: 065

REACTIONS (2)
  - Hospitalisation [Unknown]
  - Emergency care [Unknown]
